FAERS Safety Report 21471630 (Version 2)
Quarter: 2022Q4

REPORT INFORMATION
  Report Type: Spontaneous
  Country: KR (occurrence: KR)
  Receive Date: 20221018
  Receipt Date: 20221115
  Transmission Date: 20230112
  Serious: Yes (Other)
  Sender: FDA-Public Use
  Company Number: KR-PFM-2022-07364

PATIENT

DRUGS (6)
  1. PROPRANOLOL [Suspect]
     Active Substance: PROPRANOLOL HYDROCHLORIDE
     Indication: Haemangioma of liver
     Dosage: 0.5 MG/KG/ D IN 2 DIVIDED DOSES
     Route: 065
  2. PROPRANOLOL [Suspect]
     Active Substance: PROPRANOLOL HYDROCHLORIDE
     Dosage: INCREASED BY 0.5 MG/KG EVERY 5 DAYS TO 3.0 MG/KG/D
     Route: 065
  3. METHYLPREDNISOLONE [Suspect]
     Active Substance: METHYLPREDNISOLONE
     Indication: Haemangioma of liver
     Dosage: 4 MG/KG/D
     Route: 065
  4. METHYLPREDNISOLONE [Suspect]
     Active Substance: METHYLPREDNISOLONE
     Dosage: TAPERING OVER 3 WEEKS
     Route: 065
  5. SIROLIMUS [Suspect]
     Active Substance: SIROLIMUS
     Indication: Haemangioma of liver
     Dosage: 0.8 MG/M2 TWICE A DAY
     Route: 065
  6. AMLODIPINE [Concomitant]
     Active Substance: AMLODIPINE BESYLATE
     Indication: Newborn persistent pulmonary hypertension
     Dosage: UNK
     Route: 048

REACTIONS (7)
  - Hepatic necrosis [Unknown]
  - Abdominal distension [Recovering/Resolving]
  - Haemangioma of liver [Unknown]
  - Disease progression [Unknown]
  - Haemoglobin decreased [Unknown]
  - Product use issue [Unknown]
  - Off label use [Unknown]
